FAERS Safety Report 4843891-2 (Version None)
Quarter: 2005Q4

REPORT INFORMATION
  Report Type: 
  Country: None (occurrence: None)
  Receive Date: 20051202
  Receipt Date: 20050718
  Transmission Date: 20060501
  Serious: Yes (Hospitalization, Disabling, Other)
  Sender: FDA-Public Use
  Company Number: US-MERCK-0507USA02914

PATIENT
  Age: 56 Year
  Sex: Female
  Weight: 77 kg

DRUGS (1)
  1. VIOXX [Suspect]
     Indication: ARTHRITIS
     Route: 048
     Dates: start: 20000308, end: 20030930

REACTIONS (10)
  - ADVERSE EVENT [None]
  - ARTHRITIS [None]
  - ARTHROPATHY [None]
  - CARDIAC DISORDER [None]
  - CEREBROVASCULAR ACCIDENT [None]
  - DEHYDRATION [None]
  - MENTAL IMPAIRMENT [None]
  - NARCOLEPSY [None]
  - NEUROPATHY [None]
  - OESOPHAGEAL DISORDER [None]
